FAERS Safety Report 10043338 (Version 3)
Quarter: 2014Q3

REPORT INFORMATION
  Report Type: Spontaneous
  Country: BR (occurrence: BR)
  Receive Date: 20140328
  Receipt Date: 20140704
  Transmission Date: 20150326
  Serious: Yes (Hospitalization, Other)
  Sender: FDA-Public Use
  Company Number: BR-ASTRAZENECA-2014SE20311

PATIENT
  Age: 76 Year
  Sex: Female
  Weight: 50 kg

DRUGS (8)
  1. SYMBICORT [Suspect]
     Active Substance: BUDESONIDE\FORMOTEROL FUMARATE DIHYDRATE
     Indication: ASTHMA
     Dosage: 320/9 MCG, UNKNOWN
     Route: 055
     Dates: start: 1994
  2. OSCAL D [Concomitant]
     Active Substance: CALCIUM CARBONATE\CHOLECALCIFEROL
     Indication: OSTEOPOROSIS
     Route: 048
     Dates: start: 1999
  3. CILOSTAZOL. [Concomitant]
     Active Substance: CILOSTAZOL
     Indication: ANGIOPATHY
     Route: 048
     Dates: start: 2010
  4. DAFLON [Concomitant]
     Active Substance: DIOSMIN\HESPERIDIN
     Dosage: TWO TIMES A DAY
     Route: 048
     Dates: start: 1994
  5. UNSPECIFIED CHEMICAL PRODUCT [Concomitant]
  6. RETEMIC [Concomitant]
     Active Substance: OXYBUTYNIN
     Indication: URINARY INCONTINENCE
     Dosage: DAILY
     Route: 048
     Dates: start: 2012
  7. SYMBICORT [Suspect]
     Active Substance: BUDESONIDE\FORMOTEROL FUMARATE DIHYDRATE
     Indication: ASTHMA
     Dosage: 160/4.5 MCG, TWO TIMES A DAY
     Route: 055
  8. GINKOMED [Concomitant]
     Indication: DEAFNESS
     Dosage: TWO TIMES A DAY
     Route: 048
     Dates: start: 201312

REACTIONS (4)
  - Foot deformity [Recovered/Resolved]
  - Peripheral vascular disorder [Recovered/Resolved]
  - Deafness [Recovering/Resolving]
  - Urinary incontinence [Recovered/Resolved]

NARRATIVE: CASE EVENT DATE: 2010
